APPROVED DRUG PRODUCT: RISPERIDONE
Active Ingredient: RISPERIDONE
Strength: 4MG
Dosage Form/Route: TABLET;ORAL
Application: A077769 | Product #006
Applicant: HERITAGE PHARMA LABS INC DBA AVET PHARMACEUTICALS LABS INC
Approved: Oct 16, 2008 | RLD: No | RS: No | Type: DISCN